FAERS Safety Report 5366323-7 (Version None)
Quarter: 2007Q2

REPORT INFORMATION
  Report Type: 
  Country: None (occurrence: None)
  Receive Date: 20070621
  Receipt Date: 20070621
  Transmission Date: 20071010
  Serious: Yes (Hospitalization)
  Sender: FDA-Public Use
  Company Number: None

PATIENT
  Sex: Female
  Weight: 72.5755 kg

DRUGS (2)
  1. TAXOTERE [Suspect]
     Indication: BREAST CANCER STAGE II
     Dosage: 128MG Q3WKS IV BOLUS
     Route: 040
     Dates: start: 20070313, end: 20070531
  2. XELODA [Suspect]
     Indication: BREAST CANCER STAGE II
     Dosage: 1650MG BID X 2WKS PO
     Route: 048
     Dates: start: 20070313, end: 20070531

REACTIONS (12)
  - ANAEMIA [None]
  - CELLULITIS STAPHYLOCOCCAL [None]
  - CONJUNCTIVITIS [None]
  - HYPOKALAEMIA [None]
  - HYPOXIA [None]
  - LEUKOCYTOSIS [None]
  - MALAISE [None]
  - MALNUTRITION [None]
  - PATHOGEN RESISTANCE [None]
  - PNEUMONIA [None]
  - RASH [None]
  - TRACE ELEMENT DEFICIENCY [None]
